FAERS Safety Report 6040398-4 (Version None)
Quarter: 2009Q1

REPORT INFORMATION
  Report Type: 
  Country: None (occurrence: None)
  Receive Date: 20090116
  Receipt Date: 20090115
  Transmission Date: 20090719
  Serious: Yes (Death, Congenital Anomaly)
  Sender: FDA-Public Use
  Company Number: CA-ASTRAZENECA-2009UW01259

PATIENT

DRUGS (4)
  1. TENORMIN [Suspect]
     Route: 064
  2. TENORMIN [Suspect]
     Route: 064
  3. TENORMIN [Suspect]
     Route: 065
  4. TENORMIN [Suspect]
     Route: 065

REACTIONS (2)
  - INTRA-UTERINE DEATH [None]
  - TURNER'S SYNDROME [None]
